FAERS Safety Report 11288748 (Version 1)
Quarter: 2015Q3

REPORT INFORMATION
  Report Type: Spontaneous
  Country: JP (occurrence: JP)
  Receive Date: 20150721
  Receipt Date: 20150721
  Transmission Date: 20151125
  Serious: Yes (Life-Threatening)
  Sender: FDA-Public Use
  Company Number: JP-BIOCRYST PHARMACEUTICALS, INC.-2015BCR00031

PATIENT
  Age: 82 Year
  Sex: Female

DRUGS (8)
  1. BAYASPIRIN [Suspect]
     Active Substance: ASPIRIN
     Indication: CEREBRAL INFARCTION
     Dosage: 100 MG, 1X/DAY
     Route: 048
     Dates: end: 20150223
  2. URSO [Suspect]
     Active Substance: URSODIOL
     Indication: POST CHOLECYSTECTOMY SYNDROME
     Dosage: 300 MG, 1X/DAY
     Route: 048
  3. KAKKONTO [Suspect]
     Active Substance: HERBALS
     Indication: NASOPHARYNGITIS
     Dosage: UNK
     Dates: start: 20150115, end: 20150116
  4. TAKEPRON [Suspect]
     Active Substance: LANSOPRAZOLE
     Indication: GASTROINTESTINAL HAEMORRHAGE
     Dosage: 15 MG, 1X/DAY
     Route: 048
  5. RAPIACTA [Suspect]
     Active Substance: PERAMIVIR
     Indication: INFLUENZA
     Dosage: 150 MG, UNK
     Route: 042
     Dates: start: 20150115, end: 20150115
  6. CALBLOCK [Suspect]
     Active Substance: AZELNIDIPINE
     Indication: HYPERTENSION
     Dosage: 16 MG, 1X/DAY
     Route: 048
     Dates: end: 20150116
  7. WARFARIN [Suspect]
     Active Substance: WARFARIN
     Indication: ATRIAL FIBRILLATION
     Dosage: 2.5 MG, 1X/DAY
     Route: 048
  8. ACINON [Suspect]
     Active Substance: NIZATIDINE
     Indication: GASTRIC ULCER
     Dosage: 150 MG, 1X/DAY
     Route: 048
     Dates: end: 20150116

REACTIONS (2)
  - Torsade de pointes [Recovered/Resolved]
  - Electrocardiogram QT prolonged [Recovered/Resolved]

NARRATIVE: CASE EVENT DATE: 20150116
